FAERS Safety Report 5171532-6 (Version None)
Quarter: 2006Q4

REPORT INFORMATION
  Report Type: 
  Country: None (occurrence: None)
  Receive Date: 20061213
  Receipt Date: 20060809
  Transmission Date: 20070319
  Serious: Yes (Hospitalization)
  Sender: FDA-Public Use
  Company Number: US-AMGEN-US189553

PATIENT
  Sex: Female

DRUGS (2)
  1. ENBREL [Suspect]
     Indication: RHEUMATOID ARTHRITIS
     Route: 058
     Dates: start: 20000701
  2. PLAQUENIL [Concomitant]
     Route: 048
     Dates: start: 20030101

REACTIONS (6)
  - BREAST CANCER [None]
  - CUTANEOUS LUPUS ERYTHEMATOSUS [None]
  - KIDNEY INFECTION [None]
  - RASH [None]
  - SEPSIS [None]
  - URINARY TRACT INFECTION [None]
